FAERS Safety Report 8381395-3 (Version None)
Quarter: 2012Q2

REPORT INFORMATION
  Report Type: 
  Country: None (occurrence: None)
  Receive Date: 20120523
  Receipt Date: 20120514
  Transmission Date: 20120825
  Serious: Yes (Hospitalization)
  Sender: FDA-Public Use
  Company Number: DE-TEVA-337908GER

PATIENT
  Sex: Female
  Weight: 70 kg

DRUGS (5)
  1. TAXOL [Suspect]
     Indication: BREAST CANCER
     Route: 042
     Dates: start: 20120223
  2. PREDNISOLONE [Concomitant]
     Dates: start: 20120412
  3. DOXORUBICIN HCL [Suspect]
     Indication: BREAST CANCER
     Route: 042
     Dates: start: 20120223
  4. AVASTIN [Suspect]
     Indication: BREAST CANCER
     Route: 042
     Dates: start: 20120223
  5. SALBUTAMOL AEROSOL [Concomitant]
     Route: 055
     Dates: start: 20120510

REACTIONS (2)
  - LUNG INFILTRATION [None]
  - PYREXIA [None]
